FAERS Safety Report 8304657-4 (Version None)
Quarter: 2012Q2

REPORT INFORMATION
  Report Type: 
  Country: None (occurrence: None)
  Receive Date: 20120423
  Receipt Date: 20120417
  Transmission Date: 20120825
  Serious: Yes (Other)
  Sender: FDA-Public Use
  Company Number: PHHY2012FR032966

PATIENT
  Sex: Female

DRUGS (4)
  1. TASIGNA [Suspect]
     Indication: CHRONIC MYELOID LEUKAEMIA
     Dosage: 300 MG, BID
     Route: 048
     Dates: start: 20110728
  2. PAROXETINE HYDROCHLORIDE [Concomitant]
     Indication: HORMONE REPLACEMENT THERAPY
  3. OESCLIM [Concomitant]
     Indication: HORMONE REPLACEMENT THERAPY
  4. PROGESTERONE [Concomitant]
     Indication: HORMONE REPLACEMENT THERAPY

REACTIONS (3)
  - CATARACT [None]
  - VISUAL ACUITY REDUCED [None]
  - HYPERCHOLESTEROLAEMIA [None]
